FAERS Safety Report 7096796-3 (Version None)
Quarter: 2010Q4

REPORT INFORMATION
  Report Type: 
  Country: None (occurrence: None)
  Receive Date: 20101111
  Receipt Date: 20101104
  Transmission Date: 20110411
  Serious: Yes (Death, Hospitalization)
  Sender: FDA-Public Use
  Company Number: BJ-PERRIGO-10BJ014502

PATIENT
  Age: 30 Year
  Sex: Female

DRUGS (3)
  1. IBUPROFEN [Suspect]
     Indication: PRODUCT USED FOR UNKNOWN INDICATION
     Dosage: UNK
     Route: 048
  2. ACETAMINOPHEN SLOW RELEASE [Suspect]
     Indication: PRODUCT USED FOR UNKNOWN INDICATION
     Dosage: UNK
     Route: 048
  3. QUININE [Suspect]
     Indication: PRODUCT USED FOR UNKNOWN INDICATION
     Dosage: UNK
     Route: 065

REACTIONS (11)
  - ANAEMIA [None]
  - HYPERCHLORAEMIA [None]
  - HYPERCREATINAEMIA [None]
  - HYPERNATRAEMIA [None]
  - LEUKOCYTOSIS [None]
  - PYREXIA [None]
  - RENAL FAILURE [None]
  - SEPSIS [None]
  - TACHYCARDIA [None]
  - TACHYPNOEA [None]
  - TOXIC EPIDERMAL NECROLYSIS [None]
